FAERS Safety Report 9398323 (Version 1)
Quarter: 2013Q3

REPORT INFORMATION
  Report Type: Spontaneous
  Country: US (occurrence: US)
  Receive Date: 20130712
  Receipt Date: 20130712
  Transmission Date: 20140515
  Serious: No
  Sender: FDA-Public Use
  Company Number: US-BAYER-2013-085142

PATIENT
  Age: 16 Year
  Sex: Female

DRUGS (1)
  1. SKYLA [Suspect]
     Indication: CONTRACEPTION
     Dosage: 14 ?G/D, CONT
     Route: 015
     Dates: start: 20130510, end: 20130513

REACTIONS (1)
  - Pelvic pain [None]
